FAERS Safety Report 7411978-6 (Version None)
Quarter: 2011Q2

REPORT INFORMATION
  Report Type: 
  Country: None (occurrence: None)
  Receive Date: 20110413
  Receipt Date: 20081217
  Transmission Date: 20111010
  Serious: Yes (Other)
  Sender: FDA-Public Use
  Company Number: US-BAYER-201040705NA

PATIENT
  Age: 69 Year
  Sex: Male
  Weight: 85 kg

DRUGS (12)
  1. NEO-SYNEPHRINOL [Concomitant]
     Dosage: 0.4 MG, UNK
  2. ATENOLOL [Concomitant]
     Dosage: 50 MG, QD
     Route: 048
  3. ZETIA [Concomitant]
     Dosage: 10 MG, QD
     Route: 048
  4. LIPITOR [Concomitant]
     Dosage: 80 MG, QD
     Route: 048
  5. ETOMIDATE [Concomitant]
  6. NITROGLYCERIN [Concomitant]
     Dosage: 50/250CC
  7. HEPARIN [Concomitant]
     Dosage: 25000 UNITS INITIAL DOSE
  8. TRASYLOL [Suspect]
     Indication: CORONARY ARTERY BYPASS
     Dosage: LOADING DOSE: 400 ML THEN 50 ML INFUSION
     Route: 042
     Dates: start: 20051230, end: 20051230
  9. VASOTEC [Concomitant]
     Dosage: 5 MG, QD
     Route: 048
  10. IMDUR [Concomitant]
     Dosage: 60 MG, QD
     Route: 048
  11. HEPARIN [Concomitant]
     Dosage: 10000 UNITS
  12. PLAVIX [Concomitant]
     Dosage: 80 MG, QD
     Route: 048

REACTIONS (11)
  - RENAL FAILURE [None]
  - PAIN [None]
  - EMOTIONAL DISTRESS [None]
  - ANXIETY [None]
  - FEAR [None]
  - DEPRESSION [None]
  - UNEVALUABLE EVENT [None]
  - STRESS [None]
  - RENAL INJURY [None]
  - RENAL IMPAIRMENT [None]
  - INJURY [None]
